FAERS Safety Report 8591391-9 (Version None)
Quarter: 2012Q3

REPORT INFORMATION
  Report Type: 
  Country: None (occurrence: None)
  Receive Date: 20120803
  Receipt Date: 20120803
  Transmission Date: 20120928
  Serious: Yes (Disabling, Other)
  Sender: FDA-Public Use
  Company Number: None

PATIENT
  Sex: Female
  Weight: 65.9 kg

DRUGS (2)
  1. SPIRONOLACTONE [Concomitant]
  2. MINOCYCLINE HCL [Suspect]
     Indication: ACNE
     Dosage: 100MG 1 EVERY 12 HOURS PO
     Route: 048
     Dates: start: 20100302, end: 20100824

REACTIONS (4)
  - PAIN [None]
  - OEDEMA PERIPHERAL [None]
  - CONTUSION [None]
  - PAIN IN EXTREMITY [None]
